FAERS Safety Report 10776241 (Version 2)
Quarter: 2015Q1

REPORT INFORMATION
  Report Type: Report from Study
  Country: JP (occurrence: JP)
  Receive Date: 20150209
  Receipt Date: 20150309
  Transmission Date: 20150721
  Serious: Yes (Death, Other)
  Sender: FDA-Public Use
  Company Number: JP-OTSUKA-JP-2014-19009

PATIENT

DRUGS (15)
  1. ALLOPURINOL. [Concomitant]
     Active Substance: ALLOPURINOL
     Indication: PRODUCT USED FOR UNKNOWN INDICATION
     Dosage: 100 MG MILLIGRAM(S), DAILY DOSE
     Route: 048
     Dates: end: 20141121
  2. MAGMITT [Concomitant]
     Active Substance: MAGNESIUM OXIDE
     Indication: PRODUCT USED FOR UNKNOWN INDICATION
     Dosage: 990 MG MILLIGRAM(S), DAILY DOSE
     Route: 048
     Dates: end: 20141105
  3. MAGMITT [Concomitant]
     Active Substance: MAGNESIUM OXIDE
     Dosage: 660 MG MILLIGRAM(S), DAILY DOSE
     Route: 048
     Dates: start: 20141106, end: 20141121
  4. LASIX M [Suspect]
     Active Substance: FUROSEMIDE
     Indication: OEDEMA DUE TO HEPATIC DISEASE
     Dosage: 80 MG MILLIGRAM(S), DAILY DOSE
     Route: 048
     Dates: end: 20140925
  5. LASIX M [Suspect]
     Active Substance: FUROSEMIDE
     Dosage: 20 MG MILLIGRAM(S), DAILY DOSE
     Route: 042
     Dates: start: 20141009, end: 20141015
  6. LANSOPRAZOLE. [Concomitant]
     Active Substance: LANSOPRAZOLE
     Indication: PRODUCT USED FOR UNKNOWN INDICATION
     Dosage: 30 MG MILLIGRAM(S), DAILY DOSE
     Route: 048
     Dates: end: 20141121
  7. SAMSCA [Suspect]
     Active Substance: TOLVAPTAN
     Indication: OEDEMA DUE TO HEPATIC DISEASE
     Dosage: 3.75 MG MILLIGRAM(S), QAM
     Route: 048
     Dates: start: 20141006, end: 20141110
  8. LASIX M [Suspect]
     Active Substance: FUROSEMIDE
     Dosage: 40 MG MILLIGRAM(S), DAILY DOSE
     Route: 048
     Dates: start: 20141024, end: 20141121
  9. LASIX M [Suspect]
     Active Substance: FUROSEMIDE
     Dosage: 40 MG MILLIGRAM(S), DAILY DOSE
     Route: 042
     Dates: start: 20140922, end: 20141007
  10. LASIX M [Suspect]
     Active Substance: FUROSEMIDE
     Dosage: 80 MG MILLIGRAM(S), DAILY DOSE
     Route: 048
     Dates: start: 20141009, end: 20141023
  11. LASIX M [Suspect]
     Active Substance: FUROSEMIDE
     Indication: OEDEMA DUE TO HEPATIC DISEASE
     Dosage: 20 MG MILLIGRAM(S), DAILY DOSE
     Route: 042
     Dates: start: 20140918, end: 20140921
  12. ALDACTONE [Suspect]
     Active Substance: SPIRONOLACTONE
     Indication: OEDEMA DUE TO HEPATIC DISEASE
     Dosage: 75 MG MILLIGRAM(S), DAILY DOSE
     Route: 048
     Dates: end: 20141107
  13. DIART [Concomitant]
     Active Substance: AZOSEMIDE
     Indication: OEDEMA DUE TO HEPATIC DISEASE
     Dosage: 30 MG MILLIGRAM(S), DAILY DOSE
     Route: 048
     Dates: end: 20141030
  14. GLIMICRON [Concomitant]
     Active Substance: GLICLAZIDE
     Indication: PRODUCT USED FOR UNKNOWN INDICATION
     Dosage: 40 MG MILLIGRAM(S), DAILY DOSE
     Route: 048
     Dates: end: 20141121
  15. MONILAC [Concomitant]
     Active Substance: LACTULOSE
     Indication: PRODUCT USED FOR UNKNOWN INDICATION
     Dosage: 60 ML MILLILITRE(S), DAILY DOSE
     Route: 048
     Dates: end: 20141121

REACTIONS (4)
  - Renal failure [Fatal]
  - Hepatic failure [Fatal]
  - Hyperkalaemia [Recovering/Resolving]
  - Peritonitis bacterial [Fatal]

NARRATIVE: CASE EVENT DATE: 20141107
